FAERS Safety Report 24640344 (Version 2)
Quarter: 2024Q4

REPORT INFORMATION
  Report Type: Spontaneous
  Country: JP (occurrence: JP)
  Receive Date: 20241120
  Receipt Date: 20241218
  Transmission Date: 20250115
  Serious: Yes (Hospitalization, Other)
  Sender: ALEXION PHARMACEUTICALS
  Company Number: JP-ASTRAZENECA-240125281_011620_P_1

PATIENT
  Age: 74 Year

DRUGS (8)
  1. LYNPARZA [Suspect]
     Active Substance: OLAPARIB
     Indication: Hormone-refractory prostate cancer
     Dosage: NUMBER OF SEPARATE DOSAGES UNKNOWN
  2. LYNPARZA [Suspect]
     Active Substance: OLAPARIB
     Dosage: NUMBER OF SEPARATE DOSAGES UNKNOWN
     Route: 048
  3. LYNPARZA [Suspect]
     Active Substance: OLAPARIB
     Dosage: NUMBER OF SEPARATE DOSAGES UNKNOWN
  4. LYNPARZA [Suspect]
     Active Substance: OLAPARIB
     Dosage: NUMBER OF SEPARATE DOSAGES UNKNOWN
     Route: 048
  5. LYNPARZA [Suspect]
     Active Substance: OLAPARIB
     Dosage: NUMBER OF SEPARATE DOSAGES UNKNOWN
  6. LYNPARZA [Suspect]
     Active Substance: OLAPARIB
     Dosage: NUMBER OF SEPARATE DOSAGES UNKNOWN
     Route: 048
  7. LYNPARZA [Suspect]
     Active Substance: OLAPARIB
     Dosage: NUMBER OF SEPARATE DOSAGES UNKNOWN
  8. LYNPARZA [Suspect]
     Active Substance: OLAPARIB
     Dosage: NUMBER OF SEPARATE DOSAGES UNKNOWN
     Route: 048

REACTIONS (2)
  - Haemoglobin decreased [Recovered/Resolved]
  - Performance status decreased [Unknown]
